FAERS Safety Report 17173191 (Version 1)
Quarter: 2019Q4

REPORT INFORMATION
  Report Type: Spontaneous
  Country: IL (occurrence: IL)
  Receive Date: 20191219
  Receipt Date: 20191219
  Transmission Date: 20200122
  Serious: Yes (Other)
  Sender: FDA-Public Use
  Company Number: IL-TEVA-2019-IL-1154143

PATIENT
  Age: 86 Year
  Sex: Female

DRUGS (1)
  1. DOPICAR [Suspect]
     Active Substance: CARBIDOPA\LEVODOPA
     Dosage: UNIT * 4 PER DAY
     Dates: start: 20160117

REACTIONS (1)
  - Parkinson^s disease [Unknown]
